FAERS Safety Report 18686383 (Version 1)
Quarter: 2020Q4

REPORT INFORMATION
  Report Type: Report from Study
  Country: US (occurrence: US)
  Receive Date: 20201231
  Receipt Date: 20201231
  Transmission Date: 20210114
  Serious: Yes (Other)
  Sender: FDA-Public Use
  Company Number: US-GILEAD-2020-0510727

PATIENT
  Age: 49 Year
  Sex: Male

DRUGS (6)
  1. ALBUTEROL [SALBUTAMOL] [Concomitant]
     Active Substance: ALBUTEROL
     Dosage: 90MCG/INH, 2 PUFFS, AEROSOL, INHALE. EVERY 6 HOURS PRN
  2. MONTELUKAST [Concomitant]
     Active Substance: MONTELUKAST SODIUM
     Dosage: 10MG, ORAL, TABLET: ONCE DAILY PRN
  3. AZITHROMYCIN ANHYDROUS. [Concomitant]
     Active Substance: AZITHROMYCIN ANHYDROUS
     Dosage: 500MG, ORAL, TABLET, 2 TABLET ONCE DAILY
  4. SOFOSBUVIR W/VELPATASVIR [Suspect]
     Active Substance: SOFOSBUVIR\VELPATASVIR
     Indication: CHRONIC HEPATITIS C
     Dosage: 1 DOSAGE FORM, QD
     Route: 048
     Dates: start: 20190913, end: 20191010
  5. SUPREP BOWEL PREP [Concomitant]
     Active Substance: MAGNESIUM SULFATE\POTASSIUM SULFATE\SODIUM SULFATE
     Dosage: 177ML, ORAL LIQUID, TWICE AS DIRECTED
  6. BECLOMETASONE [Concomitant]
     Active Substance: BECLOMETHASONE DIPROPIONATE
     Dosage: 80MCG MCH/INH INHALATION AERSOL. INHALE BID 2 PUFF OF 80 MCG

REACTIONS (7)
  - HIV infection [Unknown]
  - Gonorrhoea [Unknown]
  - Bipolar disorder [Unknown]
  - Weight increased [Unknown]
  - Asthma [Unknown]
  - Depression [Unknown]
  - Rhinitis allergic [Unknown]

NARRATIVE: CASE EVENT DATE: 20190913
